FAERS Safety Report 11100542 (Version 2)
Quarter: 2015Q2

REPORT INFORMATION
  Report Type: Spontaneous
  Country: FR (occurrence: None)
  Receive Date: 20150506
  Receipt Date: 20150513
  Transmission Date: 20150821
  Serious: Yes (Hospitalization)
  Sender: FDA-Public Use
  Company Number: 2015FE01378

PATIENT
  Age: 39 Year
  Sex: Male

DRUGS (2)
  1. AMLOR (AMLODIPINE BESILATE) [Concomitant]
     Active Substance: AMLODIPINE BESYLATE
  2. MINIRIN [Suspect]
     Active Substance: DESMOPRESSIN ACETATE
     Indication: PRODUCT USED FOR UNKNOWN INDICATION
     Route: 045
     Dates: start: 2001, end: 20150223

REACTIONS (10)
  - Water intoxication [None]
  - Disorientation [None]
  - Clonic convulsion [None]
  - Hyponatraemia [None]
  - Intentional overdose [None]
  - Drug dependence [None]
  - Blood pressure increased [None]
  - Pulmonary embolism [None]
  - Haematemesis [None]
  - Tachycardia [None]

NARRATIVE: CASE EVENT DATE: 20150208
